FAERS Safety Report 14292060 (Version 3)
Quarter: 2018Q1

REPORT INFORMATION
  Report Type: Spontaneous
  Country: US (occurrence: US)
  Receive Date: 20171215
  Receipt Date: 20180308
  Transmission Date: 20180509
  Serious: Yes (Other)
  Sender: FDA-Public Use
  Company Number: US-SA-2017SA151220

PATIENT
  Age: 67 Year
  Sex: Female
  Weight: 90.7 kg

DRUGS (1)
  1. ACT DRY MOUTH LOZENGES [Suspect]
     Active Substance: XYLITOL
     Indication: DRY MOUTH
     Route: 065
     Dates: end: 20170813

REACTIONS (10)
  - Feeding disorder [Unknown]
  - Foaming at mouth [Unknown]
  - Hyperhidrosis [Unknown]
  - Feeling abnormal [Unknown]
  - Dizziness [Unknown]
  - Retching [Unknown]
  - Loss of consciousness [Unknown]
  - Vomiting [Unknown]
  - Cold sweat [Unknown]
  - Malaise [Unknown]

NARRATIVE: CASE EVENT DATE: 20170812
